FAERS Safety Report 11605432 (Version 2)
Quarter: 2015Q4

REPORT INFORMATION
  Report Type: Spontaneous
  Country: US (occurrence: US)
  Receive Date: 20151007
  Receipt Date: 20151104
  Transmission Date: 20160304
  Serious: Yes (Other)
  Sender: FDA-Public Use
  Company Number: US-SA-2015SA153352

PATIENT
  Age: 54 Year
  Sex: Male
  Weight: 107.95 kg

DRUGS (7)
  1. ALIROCUMAB PREFILLED PEN [Concomitant]
     Indication: HYPERCHOLESTEROLAEMIA
     Route: 058
     Dates: start: 20150925
  2. PRALUENT [Suspect]
     Active Substance: ALIROCUMAB
     Indication: HYPERCHOLESTEROLAEMIA
     Route: 058
     Dates: start: 20150925
  3. ASPIRIN. [Concomitant]
     Active Substance: ASPIRIN
  4. PANTHENOL/RETINOL/THIAMINE HYDROCHLORIDE/ASCORBIC ACID/ERGOCALCIFEROL/FOLIC ACID/RIBOFLAVIN/NICOTINA [Concomitant]
  5. GLUCOSAMINE [Concomitant]
     Active Substance: GLUCOSAMINE
     Indication: ARTHRALGIA
  6. NIACIN. [Concomitant]
     Active Substance: NIACIN
     Indication: BLOOD CHOLESTEROL DECREASED
  7. IBUPROFEN. [Concomitant]
     Active Substance: IBUPROFEN
     Indication: ARTHRALGIA

REACTIONS (1)
  - Ventricular flutter [Not Recovered/Not Resolved]

NARRATIVE: CASE EVENT DATE: 2015
